FAERS Safety Report 4432765-7 (Version None)
Quarter: 2004Q3

REPORT INFORMATION
  Report Type: 
  Country: None (occurrence: None)
  Receive Date: 20040823
  Receipt Date: 20040806
  Transmission Date: 20050211
  Serious: Yes (Death)
  Sender: FDA-Public Use
  Company Number: HQWYE095909AUG04

PATIENT
  Sex: Female

DRUGS (2)
  1. LEDERMYCIN (DEMECLOCYCLINE, UNSPEC) [Suspect]
     Indication: HYPONATRAEMIA
     Route: 048
  2. LEDERMYCIN (DEMECLOCYCLINE, UNSPEC) [Suspect]
     Indication: INAPPROPRIATE ANTIDIURETIC HORMONE SECRETION
     Route: 048

REACTIONS (1)
  - VASCULAR ACCESS COMPLICATION [None]
